FAERS Safety Report 5311027-X (Version None)
Quarter: 2007Q2

REPORT INFORMATION
  Report Type: 
  Country: None (occurrence: None)
  Receive Date: 20070430
  Receipt Date: 20070419
  Transmission Date: 20071010
  Serious: Yes (Other)
  Sender: FDA-Public Use
  Company Number: US-JNJFOC-20070404248

PATIENT
  Age: 60 Year
  Sex: Female
  Weight: 72.58 kg

DRUGS (8)
  1. IMODIUM A-D [Suspect]
     Route: 048
  2. IMODIUM A-D [Suspect]
     Indication: DIARRHOEA
     Route: 048
  3. ATENOLOL [Concomitant]
     Indication: HYPERTENSION
  4. ECOTRIN [Concomitant]
  5. ATIVAN [Concomitant]
  6. POTASSIUM ACETATE [Concomitant]
  7. MAGNESIUM SULFATE [Concomitant]
  8. NORPACE [Concomitant]
     Indication: ATRIAL FIBRILLATION

REACTIONS (4)
  - ATRIAL FIBRILLATION [None]
  - INCORRECT DOSE ADMINISTERED [None]
  - LIVER FUNCTION TEST ABNORMAL [None]
  - VOMITING [None]
